FAERS Safety Report 15580571 (Version 1)
Quarter: 2018Q4

REPORT INFORMATION
  Report Type: Report from Study
  Country: IT (occurrence: IT)
  Receive Date: 20181102
  Receipt Date: 20181102
  Transmission Date: 20190205
  Serious: Yes (Other)
  Sender: FDA-Public Use
  Company Number: IT-TEVA-2018-IT-971173

PATIENT
  Age: 84 Year
  Sex: Male

DRUGS (4)
  1. CARDICOR 2,5 MG COMPRESSE RIVESTITE CON FILM [Concomitant]
     Active Substance: BISOPROLOL FUMARATE
  2. DONEPEZIL. [Concomitant]
     Active Substance: DONEPEZIL
  3. TRIATEC  5 MG COMPRESSE [Concomitant]
     Active Substance: RAMIPRIL
  4. TICLOPIDINE [Suspect]
     Active Substance: TICLOPIDINE
     Indication: ATRIAL FIBRILLATION
     Dosage: 250 MILLIGRAM DAILY;
     Route: 048

REACTIONS (2)
  - Haematoma [Recovering/Resolving]
  - Wound [Recovering/Resolving]

NARRATIVE: CASE EVENT DATE: 20180824
